FAERS Safety Report 9241351 (Version 1)
Quarter: 2013Q2

REPORT INFORMATION
  Report Type: Spontaneous
  Country: US (occurrence: US)
  Receive Date: 20130419
  Receipt Date: 20130419
  Transmission Date: 20140414
  Serious: No
  Sender: FDA-Public Use
  Company Number: US-BIOGENIDEC-2013BI034693

PATIENT
  Age: 58 Year
  Sex: Female

DRUGS (3)
  1. TYSABRI [Suspect]
     Indication: MULTIPLE SCLEROSIS
     Route: 042
     Dates: start: 20111208
  2. PRESTIQ [Concomitant]
     Indication: DEPRESSED MOOD
  3. WELLBUTRIN [Concomitant]
     Indication: DEPRESSED MOOD

REACTIONS (1)
  - Weight decreased [Recovered/Resolved]
